FAERS Safety Report 7202348-4 (Version None)
Quarter: 2010Q4

REPORT INFORMATION
  Report Type: 
  Country: None (occurrence: None)
  Receive Date: 20101229
  Receipt Date: 20101220
  Transmission Date: 20110411
  Serious: Yes (Other)
  Sender: FDA-Public Use
  Company Number: US-PFIZER INC-2010176243

PATIENT
  Sex: Male

DRUGS (1)
  1. CELEBREX [Suspect]
     Indication: ARTHRITIS
     Dosage: UNK
     Dates: start: 20101220, end: 20101220

REACTIONS (7)
  - CHEST PAIN [None]
  - DRUG DISPENSING ERROR [None]
  - MALAISE [None]
  - MYOCARDIAL INFARCTION [None]
  - PALPITATIONS [None]
  - SPEECH DISORDER [None]
  - VOMITING [None]
